FAERS Safety Report 9101124 (Version 1)
Quarter: 2013Q1

REPORT INFORMATION
  Report Type: Spontaneous
  Country: SK (occurrence: SK)
  Receive Date: 20130215
  Receipt Date: 20130215
  Transmission Date: 20140127
  Serious: Yes (Death, Other)
  Sender: FDA-Public Use
  Company Number: SK-BAXTER-2013BAX005547

PATIENT
  Age: 53 Year
  Sex: Female

DRUGS (2)
  1. SUPRANE [Suspect]
     Indication: MAINTENANCE OF ANAESTHESIA
     Route: 055
     Dates: start: 20130203, end: 20130203
  2. SUCCINYLCHOLINE [Suspect]
     Indication: INDUCTION OF ANAESTHESIA
     Route: 042
     Dates: start: 20130203, end: 20130203

REACTIONS (2)
  - Hyperthermia malignant [Fatal]
  - Disseminated intravascular coagulation [Unknown]
